FAERS Safety Report 21749582 (Version 1)
Quarter: 2022Q4

REPORT INFORMATION
  Report Type: Spontaneous
  Country: US (occurrence: None)
  Receive Date: 20221217
  Receipt Date: 20221217
  Transmission Date: 20230112
  Serious: No
  Sender: FDA-Public Use
  Company Number: None

PATIENT
  Sex: Female

DRUGS (1)
  1. RINVOQ [Suspect]
     Active Substance: UPADACITINIB
     Indication: Rheumatoid arthritis
     Dosage: 15MG DAILY BY MOUTH
     Route: 048
     Dates: start: 20220624

REACTIONS (4)
  - Joint swelling [None]
  - Condition aggravated [None]
  - Arthralgia [None]
  - Fatigue [None]
